FAERS Safety Report 6924330-4 (Version None)
Quarter: 2010Q3

REPORT INFORMATION
  Report Type: 
  Country: None (occurrence: None)
  Receive Date: 20100811
  Receipt Date: 20100811
  Transmission Date: 20110219
  Serious: Yes (Death)
  Sender: FDA-Public Use
  Company Number: None

PATIENT
  Age: 72 Year
  Sex: Male
  Weight: 113.6 kg

DRUGS (2)
  1. PRASUGREL 10 MG [Suspect]
     Indication: PERCUTANEOUS CORONARY INTERVENTION
     Dosage: PRASUGREL 60 MG -LOAD- X1 PO
     Route: 048
     Dates: start: 20100623, end: 20100624
  2. CLOPIDEGREL [Suspect]
     Indication: PERCUTANEOUS CORONARY INTERVENTION
     Dosage: CLOPIDIGREL 75 MG PO
     Route: 048
     Dates: start: 20100625, end: 20100701

REACTIONS (12)
  - COAGULOPATHY [None]
  - CONTUSION [None]
  - ECCHYMOSIS [None]
  - GROIN PAIN [None]
  - LOCAL SWELLING [None]
  - OEDEMA PERIPHERAL [None]
  - PAIN [None]
  - PAIN IN EXTREMITY [None]
  - PALLOR [None]
  - PULMONARY EMBOLISM [None]
  - RESPIRATORY DISTRESS [None]
  - VENTILATION PERFUSION MISMATCH [None]
